FAERS Safety Report 5330652-3 (Version None)
Quarter: 2007Q2

REPORT INFORMATION
  Report Type: 
  Country: None (occurrence: None)
  Receive Date: 20070522
  Receipt Date: 20070518
  Transmission Date: 20071010
  Serious: Yes (Life-Threatening, Hospitalization)
  Sender: FDA-Public Use
  Company Number: US-RB-006377-07

PATIENT
  Sex: Male

DRUGS (2)
  1. SUBOXONE [Suspect]
  2. KLONOPIN [Concomitant]
     Dosage: 2-4 MG TID

REACTIONS (3)
  - COMA [None]
  - CYANOSIS [None]
  - DYSPNOEA [None]
